APPROVED DRUG PRODUCT: THEOPHYLLINE
Active Ingredient: THEOPHYLLINE
Strength: 400MG
Dosage Form/Route: TABLET, EXTENDED RELEASE;ORAL
Application: A090355 | Product #001 | TE Code: AB
Applicant: GLENMARK PHARMACEUTICALS LTD
Approved: Jul 13, 2010 | RLD: No | RS: No | Type: RX